FAERS Safety Report 5309082-6 (Version None)
Quarter: 2007Q2

REPORT INFORMATION
  Report Type: 
  Country: None (occurrence: None)
  Receive Date: 20070426
  Receipt Date: 20070413
  Transmission Date: 20071010
  Serious: Yes (Hospitalization)
  Sender: FDA-Public Use
  Company Number: IT-GENENTECH-239319

PATIENT
  Sex: Female

DRUGS (4)
  1. AVASTIN [Suspect]
     Indication: COLON CANCER
     Dosage: 5 MG/M2, UNK
     Route: 042
     Dates: start: 20070131, end: 20070301
  2. FLUOROURACIL [Suspect]
     Indication: COLON CANCER
     Dosage: 3200 MG/M2, UNK
     Route: 042
     Dates: start: 20070131, end: 20070301
  3. OXALIPLATIN [Suspect]
     Indication: COLON CANCER
     Dosage: 85 MG/M2, UNK
     Route: 042
     Dates: start: 20070131, end: 20070301
  4. NEORECORMON [Concomitant]
     Indication: DRUG USE FOR UNKNOWN INDICATION

REACTIONS (4)
  - ANAEMIA [None]
  - MUCOSAL INFLAMMATION [None]
  - NEUTROPENIA [None]
  - PYREXIA [None]
